FAERS Safety Report 22095330 (Version 1)
Quarter: 2023Q1

REPORT INFORMATION
  Report Type: Spontaneous
  Country: US (occurrence: US)
  Receive Date: 20230314
  Receipt Date: 20230314
  Transmission Date: 20230418
  Serious: No
  Sender: FDA-Public Use
  Company Number: US-Teikoku Pharma USA-TPU2023-00081

PATIENT
  Sex: Female

DRUGS (6)
  1. LIDOCAINE PATCH [Suspect]
     Active Substance: LIDOCAINE
     Indication: Pain
     Dosage: UP TO 3 PATCHES
     Route: 061
     Dates: start: 2016
  2. LIDOCAINE PATCH [Suspect]
     Active Substance: LIDOCAINE
     Indication: Arthritis
     Dosage: UP TO 3 PATCHES
     Route: 061
     Dates: start: 2022
  3. LIDOCAINE PATCH [Suspect]
     Active Substance: LIDOCAINE
     Indication: Osteoarthritis
  4. LIDOCAINE PATCH [Suspect]
     Active Substance: LIDOCAINE
     Indication: Back pain
  5. HYDROCODONE [Concomitant]
     Active Substance: HYDROCODONE
  6. OXYCODONE [Concomitant]
     Active Substance: OXYCODONE
     Dosage: 7.5MG/325 MG
     Dates: start: 2022

REACTIONS (1)
  - Mobility decreased [Unknown]
